FAERS Safety Report 14255600 (Version 10)
Quarter: 2018Q2

REPORT INFORMATION
  Report Type: Spontaneous
  Country: US (occurrence: US)
  Receive Date: 20171206
  Receipt Date: 20180625
  Transmission Date: 20180711
  Serious: Yes (Other)
  Sender: FDA-Public Use
  Company Number: US-INCYTE CORPORATION-2017IN010361

PATIENT

DRUGS (18)
  1. JAKAFI [Suspect]
     Active Substance: RUXOLITINIB
     Indication: POLYCYTHAEMIA VERA
     Dosage: 10 MG, BID
     Route: 048
     Dates: start: 20171122
  2. XANAX [Suspect]
     Active Substance: ALPRAZOLAM
     Indication: PRODUCT USED FOR UNKNOWN INDICATION
     Dosage: UNK
     Route: 065
  3. ALPRAZOLAM. [Concomitant]
     Active Substance: ALPRAZOLAM
     Indication: PRODUCT USED FOR UNKNOWN INDICATION
     Dosage: UNK
     Route: 065
  4. JAKAFI [Suspect]
     Active Substance: RUXOLITINIB
     Dosage: 25 MG, QD
     Route: 065
  5. ZOLOFT [Concomitant]
     Active Substance: SERTRALINE HYDROCHLORIDE
     Indication: PRODUCT USED FOR UNKNOWN INDICATION
     Dosage: UNK
     Route: 065
  6. JAKAFI [Suspect]
     Active Substance: RUXOLITINIB
     Dosage: 20 MG, BID
  7. ASPIRIN                            /00002701/ [Concomitant]
     Active Substance: ASPIRIN
     Indication: PRODUCT USED FOR UNKNOWN INDICATION
     Dosage: UNK
     Route: 065
  8. PEG                                /01543001/ [Concomitant]
     Active Substance: PEGINTERFERON ALFA-2B
     Indication: PRODUCT USED FOR UNKNOWN INDICATION
     Dosage: UNK
     Route: 065
  9. JAKAFI [Suspect]
     Active Substance: RUXOLITINIB
     Dosage: 10 MG, BID
     Route: 048
     Dates: start: 20171129, end: 201712
  10. LISINOPRIL. [Concomitant]
     Active Substance: LISINOPRIL
     Indication: PRODUCT USED FOR UNKNOWN INDICATION
     Dosage: UNK
     Route: 065
  11. METOPROLOL                         /00376902/ [Concomitant]
     Active Substance: METOPROLOL TARTRATE
     Indication: PRODUCT USED FOR UNKNOWN INDICATION
     Dosage: UNK
     Route: 065
  12. CRESTOR [Concomitant]
     Active Substance: ROSUVASTATIN CALCIUM
     Indication: PRODUCT USED FOR UNKNOWN INDICATION
     Dosage: UNK
     Route: 065
  13. PAROXETINE. [Suspect]
     Active Substance: PAROXETINE
     Indication: PRODUCT USED FOR UNKNOWN INDICATION
     Dosage: UNK
     Route: 065
     Dates: start: 20180410
  14. CLOPIDOGREL [Concomitant]
     Active Substance: CLOPIDOGREL BISULFATE
     Indication: PRODUCT USED FOR UNKNOWN INDICATION
     Dosage: UNK
     Route: 065
  15. JAKAFI [Suspect]
     Active Substance: RUXOLITINIB
     Dosage: 15 MG, BID
     Route: 048
     Dates: start: 201712
  16. JAKAFI [Suspect]
     Active Substance: RUXOLITINIB
     Dosage: 30 MG IN THE AM, 15 MG IN THE PM
     Route: 048
  17. JAKAFI [Suspect]
     Active Substance: RUXOLITINIB
     Dosage: 25 MG, BID
     Route: 048
     Dates: start: 20171122
  18. JAKAFI [Suspect]
     Active Substance: RUXOLITINIB
     Dosage: 15 MG, BID
     Route: 065

REACTIONS (36)
  - Myalgia [Unknown]
  - Feeling abnormal [Unknown]
  - Feeling of relaxation [Unknown]
  - Dizziness postural [Unknown]
  - Arthralgia [Unknown]
  - Aggression [Unknown]
  - Headache [Not Recovered/Not Resolved]
  - Serotonin syndrome [Unknown]
  - Abnormal dreams [Not Recovered/Not Resolved]
  - Thinking abnormal [Unknown]
  - Flatulence [Unknown]
  - Abdominal distension [Not Recovered/Not Resolved]
  - Confusional state [Unknown]
  - Weight decreased [Unknown]
  - Night sweats [Unknown]
  - Fatigue [Not Recovered/Not Resolved]
  - Blood pressure increased [Unknown]
  - Insomnia [Not Recovered/Not Resolved]
  - Back pain [Not Recovered/Not Resolved]
  - Burning sensation [Unknown]
  - Dyspnoea [Unknown]
  - Diplopia [Unknown]
  - Restless legs syndrome [Not Recovered/Not Resolved]
  - Pigmentation disorder [Recovered/Resolved]
  - Panic attack [Unknown]
  - Cold sweat [Not Recovered/Not Resolved]
  - Constipation [Unknown]
  - Nausea [Unknown]
  - Pain [Unknown]
  - Memory impairment [Unknown]
  - Neck pain [Unknown]
  - Drug dose omission [Unknown]
  - Hyperhidrosis [Unknown]
  - Diarrhoea [Not Recovered/Not Resolved]
  - Feeling hot [Not Recovered/Not Resolved]
  - Anxiety [Unknown]

NARRATIVE: CASE EVENT DATE: 201711
